FAERS Safety Report 4308962-8 (Version None)
Quarter: 2004Q1

REPORT INFORMATION
  Report Type: 
  Country: None (occurrence: None)
  Receive Date: 20040227
  Receipt Date: 20040212
  Transmission Date: 20041129
  Serious: Yes (Hospitalization)
  Sender: FDA-Public Use
  Company Number: 02100-UK-04-0001

PATIENT
  Age: 74 Year
  Sex: Female

DRUGS (5)
  1. CILOSTAZOL [Suspect]
     Indication: SKIN ULCER
     Dosage: ORAL
     Route: 048
  2. VALSARTAN [Suspect]
     Indication: ESSENTIAL HYPERTENSION
     Dosage: ORAL
     Route: 048
     Dates: start: 19990208
  3. ROSIGLITAZONE MALEATE [Concomitant]
  4. FUROSEMIDE SODIUMJ [Concomitant]
  5. ATORVASTATIN [Concomitant]

REACTIONS (7)
  - BLOOD CHLORIDE INCREASED [None]
  - BLOOD GLUCOSE INCREASED [None]
  - BLOOD UREA INCREASED [None]
  - DYSPNOEA [None]
  - FLUID OVERLOAD [None]
  - PCO2 DECREASED [None]
  - PULMONARY OEDEMA [None]
